FAERS Safety Report 21028672 (Version 1)
Quarter: 2022Q2

REPORT INFORMATION
  Report Type: Spontaneous
  Country: US (occurrence: US)
  Receive Date: 20220630
  Receipt Date: 20220630
  Transmission Date: 20220721
  Serious: Yes (Other)
  Sender: FDA-Public Use
  Company Number: US-BRISTOL-MYERS SQUIBB COMPANY-2022-062751

PATIENT
  Age: 58 Year
  Sex: Female

DRUGS (2)
  1. REVLIMID [Suspect]
     Active Substance: LENALIDOMIDE
     Indication: Plasma cell myeloma
     Route: 048
     Dates: start: 20220426
  2. VELCADE [Suspect]
     Active Substance: BORTEZOMIB
     Indication: Spinal cord neoplasm
     Route: 065

REACTIONS (2)
  - Neuropathy peripheral [Unknown]
  - Spinal cord neoplasm [Unknown]
